FAERS Safety Report 25430972 (Version 1)
Quarter: 2025Q2

REPORT INFORMATION
  Report Type: Spontaneous
  Country: CN (occurrence: CN)
  Receive Date: 20250612
  Receipt Date: 20250612
  Transmission Date: 20250717
  Serious: Yes (Hospitalization)
  Sender: BEIGENE
  Company Number: CN-BEIGENE-BGN-2025-009204

PATIENT
  Age: 54 Year

DRUGS (16)
  1. TISLELIZUMAB [Suspect]
     Active Substance: TISLELIZUMAB
     Indication: Lip and/or oral cavity cancer
  2. TISLELIZUMAB [Suspect]
     Active Substance: TISLELIZUMAB
     Route: 041
  3. TISLELIZUMAB [Suspect]
     Active Substance: TISLELIZUMAB
     Route: 041
  4. TISLELIZUMAB [Suspect]
     Active Substance: TISLELIZUMAB
  5. FLUOROURACIL [Suspect]
     Active Substance: FLUOROURACIL
     Indication: Lip and/or oral cavity cancer
  6. FLUOROURACIL [Suspect]
     Active Substance: FLUOROURACIL
     Route: 041
  7. FLUOROURACIL [Suspect]
     Active Substance: FLUOROURACIL
     Route: 041
  8. FLUOROURACIL [Suspect]
     Active Substance: FLUOROURACIL
  9. CISPLATIN [Suspect]
     Active Substance: CISPLATIN
     Indication: Lip and/or oral cavity cancer
  10. CISPLATIN [Suspect]
     Active Substance: CISPLATIN
     Route: 041
  11. CISPLATIN [Suspect]
     Active Substance: CISPLATIN
     Route: 041
  12. CISPLATIN [Suspect]
     Active Substance: CISPLATIN
  13. ERBITUX [Suspect]
     Active Substance: CETUXIMAB
     Indication: Lip and/or oral cavity cancer
  14. ERBITUX [Suspect]
     Active Substance: CETUXIMAB
     Route: 041
  15. ERBITUX [Suspect]
     Active Substance: CETUXIMAB
     Route: 041
  16. ERBITUX [Suspect]
     Active Substance: CETUXIMAB

REACTIONS (1)
  - Myelosuppression [Recovering/Resolving]
